FAERS Safety Report 8476513-2 (Version None)
Quarter: 2012Q2

REPORT INFORMATION
  Report Type: 
  Country: None (occurrence: None)
  Receive Date: 20120628
  Receipt Date: 20120625
  Transmission Date: 20120825
  Serious: Yes (Other)
  Sender: FDA-Public Use
  Company Number: FR-GILEAD-2012-0057075

PATIENT
  Sex: Male

DRUGS (1)
  1. VIREAD [Suspect]
     Indication: HEPATITIS
     Dosage: UNK
     Dates: start: 20041001

REACTIONS (2)
  - FEMORAL NECK FRACTURE [None]
  - RIB FRACTURE [None]
